FAERS Safety Report 22075105 (Version 1)
Quarter: 2023Q1

REPORT INFORMATION
  Report Type: Spontaneous
  Country: US (occurrence: None)
  Receive Date: 20230308
  Receipt Date: 20230308
  Transmission Date: 20230417
  Serious: Yes (Hospitalization)
  Sender: FDA-Public Use
  Company Number: None

PATIENT

DRUGS (4)
  1. CYCLOSPORINE [Suspect]
     Active Substance: CYCLOSPORINE
  2. TACROLIMUS [Suspect]
     Active Substance: TACROLIMUS
     Route: 048
  3. EVEROLIMUS [Suspect]
     Active Substance: EVEROLIMUS
  4. SIROLIMUS [Suspect]
     Active Substance: SIROLIMUS

REACTIONS (6)
  - Product dispensing issue [None]
  - Product communication issue [None]
  - Product monitoring error [None]
  - Product dose confusion [None]
  - Therapy change [None]
  - Transplant [None]
